FAERS Safety Report 9962870 (Version 2)
Quarter: 2014Q1

REPORT INFORMATION
  Report Type: Report from Study
  Country: US (occurrence: US)
  Receive Date: 20140305
  Receipt Date: 20140305
  Transmission Date: 20141002
  Serious: Yes (Other)
  Sender: FDA-Public Use
  Company Number: US-ABBVIE-13P-163-1100224-00

PATIENT
  Age: 52 Year
  Sex: Female

DRUGS (4)
  1. HUMIRA [Suspect]
     Indication: CROHN^S DISEASE
     Dates: start: 20130301
  2. LIPITOR [Concomitant]
     Indication: PRODUCT USED FOR UNKNOWN INDICATION
  3. SYNTHROID [Concomitant]
     Indication: PRODUCT USED FOR UNKNOWN INDICATION
  4. VOLTAREN [Concomitant]
     Indication: PRODUCT USED FOR UNKNOWN INDICATION
     Dosage: STOPPED 1 WK BEFORE CARPAL TUNNEL SURGERY

REACTIONS (3)
  - Carpal tunnel decompression [Recovering/Resolving]
  - Injection site pain [Recovering/Resolving]
  - Injection site pain [Recovering/Resolving]
